FAERS Safety Report 7635363-7 (Version None)
Quarter: 2011Q3

REPORT INFORMATION
  Report Type: 
  Country: None (occurrence: None)
  Receive Date: 20110726
  Receipt Date: 20110720
  Transmission Date: 20111222
  Serious: Yes (Hospitalization)
  Sender: FDA-Public Use
  Company Number: FR-SANOFI-AVENTIS-2011SA046334

PATIENT
  Age: 85 Year
  Sex: Male

DRUGS (14)
  1. NIFEDIPINE [Concomitant]
  2. PLAVIX [Concomitant]
  3. ARICEPT [Concomitant]
  4. MIANSERINE [Concomitant]
  5. RISPERDAL [Concomitant]
  6. OXAZEPAM [Concomitant]
  7. INDAPAMIDE [Suspect]
     Indication: PRODUCT USED FOR UNKNOWN INDICATION
     Route: 048
     Dates: end: 20110501
  8. RAMIPRIL [Suspect]
     Indication: HYPERTENSION
     Route: 048
     Dates: end: 20110501
  9. EXOMUC [Concomitant]
  10. ESOMEPRAZOLE MAGNESIUM [Suspect]
     Route: 048
     Dates: end: 20110501
  11. LEVOTHYROXINE SODIUM [Concomitant]
  12. AVODART [Concomitant]
  13. TANGANIL [Concomitant]
  14. RILMENIDINE [Concomitant]

REACTIONS (3)
  - DISTURBANCE IN ATTENTION [None]
  - DYSPNOEA [None]
  - HYPONATRAEMIA [None]
